FAERS Safety Report 20205003 (Version 2)
Quarter: 2021Q4

REPORT INFORMATION
  Report Type: Report from Study
  Country: US (occurrence: US)
  Receive Date: 20211220
  Receipt Date: 20211224
  Transmission Date: 20220303
  Serious: No
  Sender: FDA-Public Use
  Company Number: US-NOVARTISTESTPH-NVSC2021US289577

PATIENT
  Sex: Female
  Weight: 104.78 kg

DRUGS (2)
  1. ENTRESTO [Suspect]
     Active Substance: SACUBITRIL\VALSARTAN
     Indication: Salivary gland cancer
     Dosage: UNK UNK, BID (49-51 MG)
     Route: 065
     Dates: start: 20210802
  2. ENTRESTO [Suspect]
     Active Substance: SACUBITRIL\VALSARTAN
     Dosage: UNK
     Route: 065

REACTIONS (2)
  - Periorbital swelling [Not Recovered/Not Resolved]
  - Alopecia [Unknown]
